FAERS Safety Report 8097127-2 (Version None)
Quarter: 2012Q1

REPORT INFORMATION
  Report Type: 
  Country: None (occurrence: None)
  Receive Date: 20120129
  Receipt Date: 20111121
  Transmission Date: 20120608
  Serious: No
  Sender: FDA-Public Use
  Company Number: US-ABBOTT-11P-163-0876476-00

PATIENT
  Age: 46 Year
  Sex: Female

DRUGS (13)
  1. PROCARDIA [Concomitant]
     Indication: RAYNAUD'S PHENOMENON
     Dosage: DAILY
  2. LASIX [Concomitant]
     Indication: DIURETIC THERAPY
     Dosage: DAILY
  3. OTC GENERIC ALLERGY MEDICATION [Concomitant]
     Indication: PRODUCT USED FOR UNKNOWN INDICATION
  4. METHOTREXATE [Concomitant]
     Indication: PRODUCT USED FOR UNKNOWN INDICATION
     Dosage: 20 MG ONCE A WEEK
  5. METOPROLOL TARTRATE [Concomitant]
     Indication: BLOOD PRESSURE
     Dosage: DAILY
  6. PROAIR HFA [Concomitant]
     Indication: PRODUCT USED FOR UNKNOWN INDICATION
  7. DEXILANT [Concomitant]
     Indication: GASTROOESOPHAGEAL REFLUX DISEASE
     Dosage: DAILY
  8. HUMIRA [Suspect]
     Indication: RHEUMATOID ARTHRITIS
     Dates: start: 20110901
  9. PREDNISONE TAB [Concomitant]
     Indication: PRODUCT USED FOR UNKNOWN INDICATION
     Dosage: 10 MG DAILY
  10. INHALERS [Concomitant]
     Indication: PRODUCT USED FOR UNKNOWN INDICATION
  11. FOLIC ACID [Concomitant]
     Indication: PRODUCT USED FOR UNKNOWN INDICATION
     Dosage: DAILY
  12. ASPIRIN [Concomitant]
     Indication: COLON CANCER
     Dosage: DAILY
  13. XANAX [Concomitant]
     Indication: INSOMNIA
     Dosage: AT BEDTIME

REACTIONS (2)
  - GAIT DISTURBANCE [None]
  - BONE PAIN [None]
